FAERS Safety Report 19190284 (Version 1)
Quarter: 2021Q2

REPORT INFORMATION
  Report Type: Spontaneous
  Country: FR (occurrence: FR)
  Receive Date: 20210428
  Receipt Date: 20210428
  Transmission Date: 20210717
  Serious: Yes (Other)
  Sender: FDA-Public Use
  Company Number: FR-TEVA-2021-FR-1904923

PATIENT
  Age: 70 Year
  Sex: Female
  Weight: 85 kg

DRUGS (6)
  1. ABASAGLAR [Concomitant]
     Active Substance: INSULIN GLARGINE
     Dosage: 1 DOSAGE FORMS DAILY; IN THE EVENING
  2. RAMIPRIL 1.25 MG?0?2.5 MG [Concomitant]
     Indication: HYPOTENSION
     Dates: start: 20210318
  3. BISOCE  1.25 MG [Concomitant]
     Active Substance: BISOPROLOL
  4. FLUOROURACILE [Suspect]
     Active Substance: FLUOROURACIL
     Indication: CHOLANGIOCARCINOMA
     Dosage: 2400 MG/M2
     Route: 042
     Dates: start: 20210318, end: 20210318
  5. METFORMIN [Concomitant]
     Active Substance: METFORMIN HYDROCHLORIDE
  6. INSULIN [Concomitant]
     Active Substance: INSULIN NOS
     Dosage: 15 IU (INTERNATIONAL UNIT) DAILY;

REACTIONS (1)
  - Atrial fibrillation [Not Recovered/Not Resolved]

NARRATIVE: CASE EVENT DATE: 20210318
